FAERS Safety Report 24681368 (Version 1)
Quarter: 2024Q4

REPORT INFORMATION
  Report Type: Other
  Country: GB (occurrence: None)
  Receive Date: 20241129
  Receipt Date: 20241129
  Transmission Date: 20250115
  Serious: Yes (Other)
  Sender: SQUARE PHARMACEUTICALS
  Company Number: GB-Square Pharmaceuticals PLC-000052

PATIENT
  Age: 26 Year
  Sex: Female
  Weight: 72 kg

DRUGS (6)
  1. ACYCLOVIR [Suspect]
     Active Substance: ACYCLOVIR
     Indication: Herpes simplex meningoencephalitis
     Dosage: 500 MG, 10 DAY COURSE
  2. VALPROIC ACID [Concomitant]
     Active Substance: VALPROIC ACID
     Indication: Antiplatelet therapy
     Dosage: 250 MILLIGRAMS
  3. CEFOTAXIME [Concomitant]
     Active Substance: CEFOTAXIME SODIUM
     Indication: Antibiotic prophylaxis
     Dosage: 2 MG
  4. DIAZEPAM [Concomitant]
     Active Substance: DIAZEPAM
     Indication: Generalised tonic-clonic seizure
     Dosage: 10 MG
  5. ACYCLOVIR [Suspect]
     Active Substance: ACYCLOVIR
     Indication: Herpes simplex meningoencephalitis
     Dosage: 500 MG
  6. ACYCLOVIR [Suspect]
     Active Substance: ACYCLOVIR
     Indication: Herpes simplex meningoencephalitis
     Dosage: 750 MG

REACTIONS (1)
  - Nephropathy toxic [Unknown]
